FAERS Safety Report 9237932 (Version 1)
Quarter: 2013Q2

REPORT INFORMATION
  Report Type: Spontaneous
  Country: RO (occurrence: RO)
  Receive Date: 20130418
  Receipt Date: 20130418
  Transmission Date: 20140414
  Serious: Yes (Life-Threatening, Hospitalization, Other)
  Sender: FDA-Public Use
  Company Number: RO-RANBAXY-2013RR-67766

PATIENT
  Age: 30 Year
  Sex: Male

DRUGS (2)
  1. IBUPROFEN [Suspect]
     Dosage: 10 TABLETS
     Route: 048
  2. CARBAMAZEPINE [Suspect]
     Dosage: 2000 MG
     Route: 065

REACTIONS (5)
  - Intentional overdose [Recovering/Resolving]
  - Suicide attempt [Recovering/Resolving]
  - Somnolence [Recovering/Resolving]
  - Psychomotor skills impaired [Recovering/Resolving]
  - Communication disorder [Recovering/Resolving]
